FAERS Safety Report 8933366 (Version 1)
Quarter: 2012Q4

REPORT INFORMATION
  Report Type: 
  Country: US (occurrence: US)
  Receive Date: 20121128
  Receipt Date: 20121128
  Transmission Date: 20130627
  Serious: Yes (Hospitalization)
  Sender: FDA-Public Use
  Company Number: US-WATSON-2012-19808

PATIENT
  Sex: Female
  Weight: 80 kg

DRUGS (2)
  1. CIPROFLOXACIN HYDROCHLORIDE [Suspect]
     Indication: INFECTION
     Dosage: 500 mg, BID
     Route: 048
     Dates: start: 201007, end: 201208
  2. CIPROFLOXACIN HYDROCHLORIDE [Suspect]
     Indication: URINARY TRACT INFECTION

REACTIONS (5)
  - Clostridium difficile colitis [Recovered/Resolved]
  - Gardnerella infection [Unknown]
  - Eye infection [Not Recovered/Not Resolved]
  - Candidiasis [Not Recovered/Not Resolved]
  - Vulvovaginal mycotic infection [Not Recovered/Not Resolved]
